FAERS Safety Report 23015985 (Version 1)
Quarter: 2023Q4

REPORT INFORMATION
  Report Type: Spontaneous
  Country: DE (occurrence: DE)
  Receive Date: 20231002
  Receipt Date: 20231002
  Transmission Date: 20240110
  Serious: Yes (Other)
  Sender: FDA-Public Use
  Company Number: DE-OTSUKA-2023_023639

PATIENT
  Age: 42 Year
  Sex: Male

DRUGS (10)
  1. FLUDARABINE [Suspect]
     Active Substance: FLUDARABINE PHOSPHATE
     Indication: Allogenic stem cell transplantation
     Dosage: 30 MG/M2,QD(8 TO 3 DAYS)OVER 30 MIN
     Route: 042
  2. FLUDARABINE [Suspect]
     Active Substance: FLUDARABINE PHOSPHATE
     Indication: Bone marrow conditioning regimen
  3. FLUDARABINE [Suspect]
     Active Substance: FLUDARABINE PHOSPHATE
     Indication: Leukoencephalopathy
  4. METHOTREXATE SODIUM [Suspect]
     Active Substance: METHOTREXATE SODIUM
     Indication: Immunosuppressant drug therapy
     Dosage: 15 MILLIGRAM/SQ. METER,(ON DAY +1)
     Route: 042
  5. METHOTREXATE SODIUM [Suspect]
     Active Substance: METHOTREXATE SODIUM
     Dosage: 10MG/SQ. METER(10 MG/KG,BODY WEIGHT DAY +3 AND +6)
     Route: 042
  6. LAPINE T-LYMPHOCYTE IMMUNE GLOBULIN [Suspect]
     Active Substance: LAPINE T-LYMPHOCYTE IMMUNE GLOBULIN
     Indication: Immunosuppressant drug therapy
     Dosage: 30MG/KG,QD,(BODYWEIGHT/DAY OVER 6-12?H)
     Route: 042
  7. CYCLOSPORINE [Suspect]
     Active Substance: CYCLOSPORINE
     Indication: Immunosuppressant drug therapy
     Dosage: UNK
     Route: 065
  8. BUSULFAN [Suspect]
     Active Substance: BUSULFAN
     Indication: Bone marrow conditioning regimen
     Dosage: 1.6 MILLIGRAM/KILOGRAM,QD(ONCE DAILY (-5 DAY))
     Route: 042
  9. BUSULFAN [Suspect]
     Active Substance: BUSULFAN
     Indication: Allogenic stem cell transplantation
     Dosage: 3.2 MG/KG,QD,(ONCE DAILY (-7 DAY AND -6 DAY))
     Route: 042
  10. BUSULFAN [Suspect]
     Active Substance: BUSULFAN
     Indication: Leukoencephalopathy

REACTIONS (6)
  - Acute kidney injury [Unknown]
  - Fall [Unknown]
  - Fracture [Unknown]
  - Nausea [Recovered/Resolved]
  - Gait disturbance [Unknown]
  - Vomiting [Recovered/Resolved]
